FAERS Safety Report 5671727-9 (Version None)
Quarter: 2008Q2

REPORT INFORMATION
  Report Type: 
  Country: None (occurrence: None)
  Receive Date: 20080229
  Receipt Date: 20071204
  Transmission Date: 20081010
  Serious: Yes (Death)
  Sender: FDA-Public Use
  Company Number: PHEH2007US11671

PATIENT
  Sex: Male

DRUGS (1)
  1. EXJADE [Suspect]
     Dosage: 500 MG, ORAL; 20 MG/KG, QD, ORAL
     Route: 048

REACTIONS (2)
  - MYELODYSPLASTIC SYNDROME [None]
  - VOMITING [None]
